FAERS Safety Report 12220625 (Version 1)
Quarter: 2016Q1

REPORT INFORMATION
  Report Type: Spontaneous
  Country: US (occurrence: None)
  Receive Date: 20160329
  Receipt Date: 20160329
  Transmission Date: 20160526
  Serious: Yes (Hospitalization)
  Sender: FDA-Public Use
  Company Number: None

PATIENT
  Age: 82 Year
  Sex: Female

DRUGS (1)
  1. TOBRAMYCIN 300MG AKORN [Suspect]
     Active Substance: TOBRAMYCIN
     Indication: BRONCHIECTASIS
     Dosage: 300MG BID NEB
     Dates: start: 20140414

REACTIONS (4)
  - Chronic obstructive pulmonary disease [None]
  - Condition aggravated [None]
  - Pneumonia mycoplasmal [None]
  - Bronchiectasis [None]

NARRATIVE: CASE EVENT DATE: 20160210
